FAERS Safety Report 8288656-7 (Version None)
Quarter: 2012Q2

REPORT INFORMATION
  Report Type: 
  Country: None (occurrence: None)
  Receive Date: 20120416
  Receipt Date: 20120410
  Transmission Date: 20120825
  Serious: Yes (Death)
  Sender: FDA-Public Use
  Company Number: NL-AMGEN-NLDSP2012010504

PATIENT
  Age: 75 Year
  Sex: Male
  Weight: 62 kg

DRUGS (1)
  1. NPLATE [Suspect]
     Indication: PRODUCT USED FOR UNKNOWN INDICATION
     Dosage: 1 MUG/KG, QWK
     Route: 058
     Dates: start: 20110812, end: 20120214

REACTIONS (1)
  - DEATH [None]
